FAERS Safety Report 22334417 (Version 2)
Quarter: 2023Q2

REPORT INFORMATION
  Report Type: Report from Study
  Country: CA (occurrence: CA)
  Receive Date: 20230517
  Receipt Date: 20230521
  Transmission Date: 20230721
  Serious: Yes (Other)
  Sender: FDA-Public Use
  Company Number: CA-BIOGEN-2023BI01205386

PATIENT
  Sex: Female

DRUGS (1)
  1. TECFIDERA [Suspect]
     Active Substance: DIMETHYL FUMARATE
     Indication: Multiple sclerosis
     Route: 050
     Dates: start: 20191102

REACTIONS (5)
  - Suicidal ideation [Unknown]
  - Depression [Unknown]
  - Personality disorder [Unknown]
  - Dehydration [Unknown]
  - Treatment noncompliance [Unknown]
